FAERS Safety Report 4459281-0 (Version None)
Quarter: 2004Q3

REPORT INFORMATION
  Report Type: 
  Country: None (occurrence: None)
  Receive Date: 20040923
  Receipt Date: 20040923
  Transmission Date: 20050211
  Serious: Yes (Hospitalization)
  Sender: FDA-Public Use
  Company Number: None

PATIENT
  Sex: Female
  Weight: 53.0709 kg

DRUGS (7)
  1. CETUXIMAB [Suspect]
     Indication: COLON CANCER
     Dosage: 250MG/M2 WEEKLY IV
     Route: 042
     Dates: start: 20040824
  2. VERAPAMIL [Concomitant]
  3. METOPROLOL [Concomitant]
  4. EDECRIN [Concomitant]
  5. COUMADIN [Concomitant]
  6. KCL TAB [Concomitant]
  7. FLAGYL [Concomitant]

REACTIONS (3)
  - DIARRHOEA [None]
  - NAUSEA [None]
  - VOMITING [None]
